FAERS Safety Report 21498882 (Version 2)
Quarter: 2022Q4

REPORT INFORMATION
  Report Type: Spontaneous
  Country: US (occurrence: US)
  Receive Date: 20221024
  Receipt Date: 20221121
  Transmission Date: 20230112
  Serious: Yes (Other)
  Sender: FDA-Public Use
  Company Number: US-BAYER-2022A143534

PATIENT
  Age: 72 Year
  Sex: Female

DRUGS (3)
  1. CLIMARA [Suspect]
     Active Substance: ESTRADIOL
     Dosage: UNK
     Route: 062
     Dates: start: 2020, end: 2020
  2. PROGESTERONE [Concomitant]
     Active Substance: PROGESTERONE
  3. PROMETRIUM [Concomitant]
     Active Substance: PROGESTERONE

REACTIONS (2)
  - Postmenopausal haemorrhage [None]
  - Breast tenderness [Recovered/Resolved]

NARRATIVE: CASE EVENT DATE: 20200901
